FAERS Safety Report 10040644 (Version 2)
Quarter: 2014Q2

REPORT INFORMATION
  Report Type: Spontaneous
  Country: FR (occurrence: FR)
  Receive Date: 20140327
  Receipt Date: 20140411
  Transmission Date: 20141212
  Serious: Yes (Death, Other)
  Sender: FDA-Public Use
  Company Number: FR-SA-2014SA036779

PATIENT
  Age: 64 Year
  Sex: Male
  Weight: 65 kg

DRUGS (6)
  1. FABRAZYME [Suspect]
     Indication: FABRY^S DISEASE
     Route: 042
     Dates: start: 200103
  2. ADVAGRAF [Concomitant]
     Indication: TRANSPLANT
  3. SOLUPRED [Concomitant]
     Indication: TRANSPLANT
  4. TENORMINE [Concomitant]
     Indication: HYPERTENSION
  5. LASILIX [Concomitant]
     Indication: HYPERTENSION
  6. ASPEGIC [Concomitant]
     Indication: CEREBROVASCULAR ACCIDENT

REACTIONS (2)
  - Cardiogenic shock [Fatal]
  - Cardiac failure [Unknown]
